FAERS Safety Report 8605994-6 (Version None)
Quarter: 2012Q3

REPORT INFORMATION
  Report Type: 
  Country: None (occurrence: None)
  Receive Date: 20120820
  Receipt Date: 20120809
  Transmission Date: 20120928
  Serious: Yes (Life-Threatening)
  Sender: FDA-Public Use
  Company Number: CO-PFIZER INC-2012195840

PATIENT
  Age: 8 Year
  Sex: Female

DRUGS (4)
  1. GENOTROPIN [Suspect]
     Indication: NOONAN SYNDROME
     Dosage: 1.2 IU/KG, WEEKLY
     Dates: start: 20100707, end: 20111201
  2. SPIRONOLACTONE [Concomitant]
     Indication: CARDIOMYOPATHY
  3. GENOTROPIN [Suspect]
     Indication: SMALL FOR DATES BABY
  4. FUROSEMIDE [Concomitant]
     Indication: CARDIOMYOPATHY

REACTIONS (1)
  - ACUTE LYMPHOCYTIC LEUKAEMIA [None]
